FAERS Safety Report 13416495 (Version 1)
Quarter: 2017Q2

REPORT INFORMATION
  Report Type: Spontaneous
  Country: None (occurrence: GB)
  Receive Date: 20170407
  Receipt Date: 20170407
  Transmission Date: 20170830
  Serious: Yes (Other)
  Sender: FDA-Public Use
  Company Number: GB-XIROMED, LLC-1065146

PATIENT
  Sex: Female

DRUGS (6)
  1. CALCIUM CARBONATE. [Interacting]
     Active Substance: CALCIUM CARBONATE
     Route: 048
  2. LEVOTHYROXINE. [Interacting]
     Active Substance: LEVOTHYROXINE
     Route: 048
  3. DULOXETINE. [Concomitant]
     Active Substance: DULOXETINE
  4. LANSOPRAZOLE. [Suspect]
     Active Substance: LANSOPRAZOLE
     Route: 048
  5. LIOTHYRONINE SODIUM. [Interacting]
     Active Substance: LIOTHYRONINE SODIUM
     Route: 048
  6. CALCITRIOL. [Concomitant]
     Active Substance: CALCITRIOL
     Route: 048

REACTIONS (3)
  - Inhibitory drug interaction [Unknown]
  - Condition aggravated [Unknown]
  - Hypothyroidism [Unknown]
